FAERS Safety Report 5652521-1 (Version None)
Quarter: 2008Q1

REPORT INFORMATION
  Report Type: 
  Country: None (occurrence: None)
  Receive Date: 20080305
  Receipt Date: 20080305
  Transmission Date: 20080703
  Serious: Yes (Life-Threatening, Hospitalization)
  Sender: FDA-Public Use
  Company Number: None

PATIENT
  Age: 60 Year
  Weight: 95.2554 kg

DRUGS (1)
  1. CHANTIX [Suspect]

REACTIONS (1)
  - SUICIDE ATTEMPT [None]
